FAERS Safety Report 8612038-9 (Version None)
Quarter: 2012Q3

REPORT INFORMATION
  Report Type: 
  Country: None (occurrence: None)
  Receive Date: 20120822
  Receipt Date: 20120810
  Transmission Date: 20120928
  Serious: Yes (Death, Hospitalization)
  Sender: FDA-Public Use
  Company Number: IT-PFIZER INC-2012171439

PATIENT
  Age: 68 Year
  Sex: Male
  Weight: 59 kg

DRUGS (6)
  1. SYNACTHEN DEPOT [Concomitant]
     Indication: ASTHENIA
     Dosage: 0.27 MG, WEEKLY
     Route: 030
     Dates: end: 20120708
  2. AMIODARONE [Concomitant]
     Indication: ARRHYTHMIA SUPRAVENTRICULAR
     Dosage: 900 MG, UNK
     Route: 042
     Dates: start: 20120727
  3. RANITIDINE [Concomitant]
     Indication: PROPHYLAXIS AGAINST GASTROINTESTINAL ULCER
     Dosage: 300 MG, 1X/DAY
     Route: 048
     Dates: start: 20110124
  4. TAMSULOSIN HYDROCHLORIDE [Concomitant]
     Indication: BENIGN PROSTATIC HYPERPLASIA
     Dosage: 0.4 MG, 1X/DAY
     Route: 048
     Dates: start: 20111124, end: 20120711
  5. VERAPAMIL [Concomitant]
     Indication: TACHYCARDIA
     Dosage: 40 MG, 3X/DAY
     Route: 048
     Dates: start: 20120629
  6. CRIZOTINIB [Suspect]
     Indication: NON-SMALL CELL LUNG CANCER
     Dosage: 250 MG, 2X/DAY
     Route: 048
     Dates: start: 20120702, end: 20120711

REACTIONS (2)
  - PNEUMONIA [None]
  - LUNG ABSCESS [None]
